FAERS Safety Report 19609742 (Version 3)
Quarter: 2021Q3

REPORT INFORMATION
  Report Type: Spontaneous
  Country: US (occurrence: US)
  Receive Date: 20210726
  Receipt Date: 20210806
  Transmission Date: 20211014
  Serious: No
  Sender: FDA-Public Use
  Company Number: US-PFIZER INC-2021493882

PATIENT
  Age: 43 Year
  Sex: Female
  Weight: 104.33 kg

DRUGS (3)
  1. CHANTIX [Suspect]
     Active Substance: VARENICLINE TARTRATE
     Indication: SMOKING CESSATION THERAPY
     Dosage: 1 MG
  2. PROLIXIN [Interacting]
     Active Substance: FLUPHENAZINE HYDROCHLORIDE
     Indication: ANXIETY
  3. PROLIXIN [Interacting]
     Active Substance: FLUPHENAZINE HYDROCHLORIDE
     Indication: POST-TRAUMATIC STRESS DISORDER
     Dosage: 25 MG TWICE A MONTH (1.5 TIMES A MONTH)

REACTIONS (3)
  - Visual impairment [Unknown]
  - Drug ineffective [Unknown]
  - Drug interaction [Unknown]
